FAERS Safety Report 15703323 (Version 1)
Quarter: 2018Q4

REPORT INFORMATION
  Report Type: Spontaneous
  Country: US (occurrence: US)
  Receive Date: 20181209
  Receipt Date: 20181209
  Transmission Date: 20190205
  Serious: No
  Sender: FDA-Public Use
  Company Number: None

PATIENT
  Age: 61 Year
  Sex: Female

DRUGS (1)
  1. NEULASTA [Suspect]
     Active Substance: PEGFILGRASTIM
     Indication: NEUTROPENIA
     Dosage: ?          OTHER FREQUENCY:AFTER CHEMO;?
     Route: 058

REACTIONS (4)
  - Injection site pain [None]
  - Arthralgia [None]
  - Myalgia [None]
  - Bone pain [None]

NARRATIVE: CASE EVENT DATE: 20181209
